FAERS Safety Report 11450558 (Version 2)
Quarter: 2015Q3

REPORT INFORMATION
  Report Type: Spontaneous
  Country: US (occurrence: US)
  Receive Date: 20150903
  Receipt Date: 20150924
  Transmission Date: 20151125
  Serious: Yes (Hospitalization)
  Sender: FDA-Public Use
  Company Number: US-ROCHE-1629310

PATIENT
  Sex: Male
  Weight: 81.72 kg

DRUGS (11)
  1. TURMERIC [Concomitant]
     Active Substance: TURMERIC
     Route: 065
     Dates: start: 20140821
  2. EFFEXOR XR [Concomitant]
     Active Substance: VENLAFAXINE HYDROCHLORIDE
     Route: 065
     Dates: start: 20141013
  3. NAC (ACETYLCYSTEINE) [Concomitant]
     Route: 065
     Dates: start: 20140821
  4. FLURAZEPAM [Concomitant]
     Active Substance: FLURAZEPAM\FLURAZEPAM HYDROCHLORIDE
     Dosage: 1 CAPSULE
     Route: 048
     Dates: start: 20140821
  5. NAPROSYN [Concomitant]
     Active Substance: NAPROXEN
     Route: 048
     Dates: start: 20150511
  6. ESBRIET [Suspect]
     Active Substance: PIRFENIDONE
     Indication: PRODUCT USED FOR UNKNOWN INDICATION
     Route: 048
     Dates: start: 20150220
  7. TRAZODONE [Concomitant]
     Active Substance: TRAZODONE HYDROCHLORIDE
     Route: 065
     Dates: start: 20150821
  8. OMEPRAZOLE. [Concomitant]
     Active Substance: OMEPRAZOLE
     Dosage: 1 CAPSULE
     Route: 048
     Dates: start: 20141217
  9. ROPINIROLE HYDROCHLORIDE. [Concomitant]
     Active Substance: ROPINIROLE HYDROCHLORIDE
     Dosage: 1 TABLET BY MOUTH ABOUT 1 HOUR BEFORE BEDTIME
     Route: 065
     Dates: start: 20140821
  10. MUCOMYST [Concomitant]
     Active Substance: ACETYLCYSTEINE
  11. LISINOPRIL. [Concomitant]
     Active Substance: LISINOPRIL
     Route: 065
     Dates: start: 20140821

REACTIONS (5)
  - Cellulitis [Unknown]
  - Swelling [Unknown]
  - Staphylococcal infection [Unknown]
  - White blood cell count increased [Unknown]
  - Erythema [Unknown]
